FAERS Safety Report 5955669-7 (Version None)
Quarter: 2008Q4

REPORT INFORMATION
  Report Type: 
  Country: None (occurrence: None)
  Receive Date: 20081117
  Receipt Date: 20081105
  Transmission Date: 20090506
  Serious: Yes (Hospitalization)
  Sender: FDA-Public Use
  Company Number: US-ELI_LILLY_AND_COMPANY-US200811001024

PATIENT
  Sex: Female

DRUGS (2)
  1. CYMBALTA [Suspect]
     Indication: DEPRESSION
     Dosage: 120 MG, DAILY (1/D)
  2. FLUOXETINE [Concomitant]

REACTIONS (2)
  - HYPERHIDROSIS [None]
  - HYSTERECTOMY [None]
